FAERS Safety Report 19996688 (Version 2)
Quarter: 2021Q4

REPORT INFORMATION
  Report Type: Other
  Country: US (occurrence: None)
  Receive Date: 20211026
  Receipt Date: 20211101
  Transmission Date: 20220303
  Serious: Yes (Death)
  Sender: FDA-Public Use
  Company Number: US-ROCHE-2940228

PATIENT
  Age: 63 Year
  Sex: Male

DRUGS (4)
  1. MYCOPHENOLATE MOFETIL [Suspect]
     Active Substance: MYCOPHENOLATE MOFETIL
     Indication: Immunosuppression
     Route: 065
  2. TOCILIZUMAB [Suspect]
     Active Substance: TOCILIZUMAB
     Indication: COVID-19
     Route: 065
  3. TACROLIMUS [Suspect]
     Active Substance: TACROLIMUS
     Indication: Immunosuppression
     Route: 065
  4. NEUPOGEN [Concomitant]
     Active Substance: FILGRASTIM
     Indication: Neutropenia

REACTIONS (5)
  - COVID-19 [Fatal]
  - Cytomegalovirus viraemia [Fatal]
  - Septic shock [Fatal]
  - Acute respiratory distress syndrome [Fatal]
  - Off label use [Unknown]
